FAERS Safety Report 6421911-1 (Version None)
Quarter: 2009Q4

REPORT INFORMATION
  Report Type: 
  Country: None (occurrence: None)
  Receive Date: 20091030
  Receipt Date: 20091019
  Transmission Date: 20100525
  Serious: No
  Sender: FDA-Public Use
  Company Number: B0599129A

PATIENT
  Age: 15 Year
  Sex: Male

DRUGS (2)
  1. RELENZA [Suspect]
     Dosage: 15MG PER DAY
     Route: 055
     Dates: start: 20091019, end: 20091019
  2. RELENZA [Suspect]
     Dosage: 10MG TWICE PER DAY
     Route: 055
     Dates: start: 20091020

REACTIONS (1)
  - OVERDOSE [None]
